FAERS Safety Report 10393729 (Version 1)
Quarter: 2014Q3

REPORT INFORMATION
  Report Type: Spontaneous
  Country: FR (occurrence: FR)
  Receive Date: 20140819
  Receipt Date: 20140819
  Transmission Date: 20150326
  Serious: Yes (Hospitalization)
  Sender: FDA-Public Use
  Company Number: FR-PERRIGO-14FR007918

PATIENT
  Sex: Female

DRUGS (1)
  1. ACETAMINOPHEN 650MG ER 544 [Suspect]
     Active Substance: ACETAMINOPHEN
     Indication: POISONING DELIBERATE
     Dosage: UNK, UNK
     Route: 048

REACTIONS (11)
  - Hyperlactacidaemia [Recovered/Resolved with Sequelae]
  - Gastric mucosal lesion [Recovered/Resolved with Sequelae]
  - Blood creatine phosphokinase increased [Unknown]
  - Colonic haematoma [None]
  - Poisoning [Recovered/Resolved with Sequelae]
  - Multi-organ failure [Unknown]
  - Acute hepatic failure [Recovered/Resolved with Sequelae]
  - Coma [Recovered/Resolved with Sequelae]
  - Shock [Unknown]
  - Musculoskeletal stiffness [Unknown]
  - Gastrointestinal necrosis [None]
